FAERS Safety Report 21951573 (Version 1)
Quarter: 2023Q1

REPORT INFORMATION
  Report Type: Spontaneous
  Country: US (occurrence: US)
  Receive Date: 20230203
  Receipt Date: 20230203
  Transmission Date: 20230418
  Serious: No
  Sender: FDA-Public Use
  Company Number: US-NAPO PHARMACEUTICALS-2022US004020

PATIENT
  Sex: Male

DRUGS (2)
  1. MYTESI [Suspect]
     Active Substance: CROFELEMER
     Indication: HIV infection
     Dosage: 125 MG, BID
     Route: 048
     Dates: start: 20220301
  2. MYTESI [Suspect]
     Active Substance: CROFELEMER
     Indication: Diarrhoea

REACTIONS (2)
  - Fatigue [Unknown]
  - Somnolence [Unknown]
